FAERS Safety Report 10980104 (Version 1)
Quarter: 2015Q2

REPORT INFORMATION
  Report Type: Spontaneous
  Country: US (occurrence: US)
  Receive Date: 20150402
  Receipt Date: 20150402
  Transmission Date: 20150821
  Serious: No
  Sender: FDA-Public Use
  Company Number: US-LUNDBECK-DKLU1109669

PATIENT
  Sex: Male

DRUGS (3)
  1. ONFI [Suspect]
     Active Substance: CLOBAZAM
     Route: 048
  2. LAMICTAL [Concomitant]
     Active Substance: LAMOTRIGINE
     Indication: PRODUCT USED FOR UNKNOWN INDICATION
  3. ONFI [Suspect]
     Active Substance: CLOBAZAM
     Indication: GENERALISED NON-CONVULSIVE EPILEPSY
     Route: 048
     Dates: start: 20150304

REACTIONS (1)
  - Fatigue [Unknown]
